FAERS Safety Report 13971900 (Version 1)
Quarter: 2017Q3

REPORT INFORMATION
  Report Type: Spontaneous
  Country: DE (occurrence: DE)
  Receive Date: 20170914
  Receipt Date: 20170914
  Transmission Date: 20171128
  Serious: Yes (Life-Threatening)
  Sender: FDA-Public Use
  Company Number: DE-TEVA-804360GER

PATIENT
  Age: 62 Year
  Sex: Male

DRUGS (9)
  1. TAMSULOSIN HEXAL [Concomitant]
     Dates: start: 20161208
  2. MAGNESIUM VERLA N DRAGEES [Concomitant]
     Dosage: INTAKE FOR MORE THAN ONE YEAR
  3. FLUANXOL [Concomitant]
     Active Substance: FLUPENTIXOL
     Dosage: EVERY 4 WEEKS
  4. CLOZAPIN [Suspect]
     Active Substance: CLOZAPINE
     Dosage: INTAKE FOR MORE THAN ONE YEAR
  5. EUTHYROX [Concomitant]
     Active Substance: LEVOTHYROXINE SODIUM
     Dosage: INTAKE FOR MORE THAN ONE YEAR
  6. SPIRONOLACTON [Concomitant]
     Active Substance: SPIRONOLACTONE
     Dates: start: 20161208
  7. ERGENYL CHRONO [Concomitant]
     Active Substance: VALPROIC ACID
     Dosage: INTAKE FOR MORE THAN ONE YEAR
  8. QUILONUM RETARD [Concomitant]
     Active Substance: LITHIUM CARBONATE
     Dosage: INTAKE FOR MORE THAN ONE YEAR
  9. BIFITERAL [Concomitant]
     Active Substance: LACTULOSE
     Dosage: INTAKE FOR MORE THAN ONE YEAR

REACTIONS (6)
  - Gait disturbance [Recovered/Resolved]
  - Cardiac failure [Recovered/Resolved]
  - Fall [Recovered/Resolved]
  - Salivary hypersecretion [Recovered/Resolved]
  - Disturbance in attention [Recovered/Resolved]
  - Urinary hesitation [Recovered/Resolved]

NARRATIVE: CASE EVENT DATE: 20161214
